FAERS Safety Report 14712683 (Version 3)
Quarter: 2018Q3

REPORT INFORMATION
  Report Type: Report from Study
  Country: US (occurrence: US)
  Receive Date: 20180404
  Receipt Date: 20180717
  Transmission Date: 20181010
  Serious: Yes (Other)
  Sender: FDA-Public Use
  Company Number: US-BRISTOL-MYERS SQUIBB COMPANY-BMS-2016-114378

PATIENT
  Age: 54 Year
  Sex: Female

DRUGS (1)
  1. NIVOLUMAB [Suspect]
     Active Substance: NIVOLUMAB
     Indication: NON-SMALL CELL LUNG CANCER
     Dosage: 240 MG, UNK
     Route: 042

REACTIONS (8)
  - Decreased appetite [Unknown]
  - Nausea [Unknown]
  - Abdominal pain upper [Recovered/Resolved]
  - Muscle spasms [Unknown]
  - Gastrooesophageal reflux disease [Recovering/Resolving]
  - Rash [Unknown]
  - Pruritus [Unknown]
  - Gastritis [Recovering/Resolving]

NARRATIVE: CASE EVENT DATE: 20160703
